FAERS Safety Report 18168886 (Version 2)
Quarter: 2021Q1

REPORT INFORMATION
  Report Type: Spontaneous
  Country: US (occurrence: US)
  Receive Date: 20200818
  Receipt Date: 20210301
  Transmission Date: 20210419
  Serious: Yes (Other)
  Sender: FDA-Public Use
  Company Number: US-GILEAD-2020-0489911

PATIENT
  Age: 48 Year
  Sex: Male
  Weight: 77.1 kg

DRUGS (23)
  1. NORVIR [Concomitant]
     Active Substance: RITONAVIR
  2. HYDROCHLOROTHIAZIDE. [Concomitant]
     Active Substance: HYDROCHLOROTHIAZIDE
  3. MEGESTROL ACETATE. [Concomitant]
     Active Substance: MEGESTROL ACETATE
  4. PRAZOSIN. [Concomitant]
     Active Substance: PRAZOSIN
  5. REYATAZ [Concomitant]
     Active Substance: ATAZANAVIR SULFATE
  6. TRUVADA [Suspect]
     Active Substance: EMTRICITABINE\TENOFOVIR DISOPROXIL FUMARATE
     Dosage: UNK
     Route: 048
     Dates: start: 200202, end: 201806
  7. DESCOVY [Concomitant]
     Active Substance: EMTRICITABINE\TENOFOVIR ALAFENAMIDE FUMARATE
  8. RITONAVIR. [Concomitant]
     Active Substance: RITONAVIR
  9. TRUVADA [Suspect]
     Active Substance: EMTRICITABINE\TENOFOVIR DISOPROXIL FUMARATE
     Indication: HIV INFECTION
     Dosage: UNK
     Route: 048
     Dates: start: 2004
  10. AMLODIPINE BESYLATE. [Concomitant]
     Active Substance: AMLODIPINE BESYLATE
  11. HYDRALAZINE [Concomitant]
     Active Substance: HYDRALAZINE HYDROCHLORIDE
  12. ZOLPIDEM [Concomitant]
     Active Substance: ZOLPIDEM TARTRATE
  13. METHOCARBAMOL. [Concomitant]
     Active Substance: METHOCARBAMOL
  14. LAC DOSE [Concomitant]
  15. SULFACET [SULFACETAMIDE SODIUM;SULFUR] [Concomitant]
  16. TRIZIVIR [Concomitant]
     Active Substance: ABACAVIR SULFATE\LAMIVUDINE\ZIDOVUDINE
  17. LORAZEPAM. [Concomitant]
     Active Substance: LORAZEPAM
  18. TRUVADA [Suspect]
     Active Substance: EMTRICITABINE\TENOFOVIR DISOPROXIL FUMARATE
     Dosage: UNK
     Route: 048
     Dates: start: 200702, end: 201806
  19. CLONAZEPAM. [Concomitant]
     Active Substance: CLONAZEPAM
  20. ESCITALOPRAM [Concomitant]
     Active Substance: ESCITALOPRAM OXALATE
  21. PROPRANOLOL [Concomitant]
     Active Substance: PROPRANOLOL HYDROCHLORIDE
  22. AMOX+AC CLAV SAN [AMOXICILLIN SODIUM;CLAVULANATE POTASSIUM] [Concomitant]
  23. DIAZEPAM. [Concomitant]
     Active Substance: DIAZEPAM

REACTIONS (11)
  - Rib fracture [Unknown]
  - Multiple fractures [Recovered/Resolved]
  - Bone density decreased [Unknown]
  - Blood calcium decreased [Unknown]
  - Anhedonia [Not Recovered/Not Resolved]
  - Osteomyelitis [Not Recovered/Not Resolved]
  - Cervical vertebral fracture [Recovered/Resolved]
  - Anxiety [Not Recovered/Not Resolved]
  - Emotional distress [Not Recovered/Not Resolved]
  - Osteoporosis [Not Recovered/Not Resolved]
  - Pain [Not Recovered/Not Resolved]

NARRATIVE: CASE EVENT DATE: 2012
